FAERS Safety Report 5912866-4 (Version None)
Quarter: 2008Q4

REPORT INFORMATION
  Report Type: 
  Country: None (occurrence: None)
  Receive Date: 20081003
  Receipt Date: 20080925
  Transmission Date: 20090506
  Serious: Yes (Hospitalization)
  Sender: FDA-Public Use
  Company Number: GXKR2008DK08852

PATIENT
  Age: 42 Year
  Sex: Male
  Weight: 86 kg

DRUGS (3)
  1. SIMVASTATIN 1A FARMA (NGX) (SIMVASTATIN) FILM-COATED TABLET, 40MG [Suspect]
     Indication: HYPERCHOLESTEROLAEMIA
     Dosage: 40 MG/DAY ORAL
     Route: 048
     Dates: start: 20080408, end: 20080626
  2. SIMVASTATIN (SIMVASTATIN) FILM COATED TABLET, 40 MG [Suspect]
     Indication: HYPERCHOLESTEROLAEMIA
     Dosage: 40 MG/DAY ORAL
     Route: 048
     Dates: start: 20080627, end: 20080702
  3. ASPIRIN AND DIPYRIDAMOLE [Concomitant]

REACTIONS (1)
  - LEUKOCYTOSIS [None]
